FAERS Safety Report 4359567-4 (Version None)
Quarter: 2004Q2

REPORT INFORMATION
  Report Type: 
  Country: None (occurrence: None)
  Receive Date: 20040517
  Receipt Date: 20040517
  Transmission Date: 20050107
  Serious: No
  Sender: FDA-Public Use
  Company Number: None

PATIENT
  Age: 69 Year
  Sex: Male
  Weight: 89.3586 kg

DRUGS (2)
  1. DOXYCYCLINE [Suspect]
     Indication: INFECTED SEBACEOUS CYST
     Dosage: 100 MG DAILY ORAL
     Route: 048
     Dates: start: 20040429, end: 20040508
  2. DOXYCYCLINE [Suspect]
     Indication: LACERATION
     Dosage: 100 MG DAILY ORAL
     Route: 048
     Dates: start: 20040429, end: 20040508

REACTIONS (1)
  - NEPHROLITHIASIS [None]
